FAERS Safety Report 9314575 (Version 1)
Quarter: 2013Q2

REPORT INFORMATION
  Report Type: Spontaneous
  Country: US (occurrence: US)
  Receive Date: 20130529
  Receipt Date: 20130529
  Transmission Date: 20140414
  Serious: Yes (Death)
  Sender: FDA-Public Use
  Company Number: US-ASTELLAS-2013US005534

PATIENT
  Age: 61 Year
  Sex: Male

DRUGS (4)
  1. PROGRAF [Suspect]
     Indication: RENAL TRANSPLANT
     Dosage: 2 MG, BID
     Route: 048
     Dates: start: 20050528, end: 20130424
  2. PROGRAF [Suspect]
     Indication: LIVER TRANSPLANT
  3. MYFORTIC [Concomitant]
     Indication: PROPHYLAXIS AGAINST TRANSPLANT REJECTION
     Dosage: 360 MG, BID
     Route: 048
     Dates: start: 20080922, end: 20130424
  4. INSULIN [Concomitant]
     Indication: DIABETES MELLITUS
     Dosage: 5 UNITS IN MORNING
     Dates: start: 20120928, end: 20130424

REACTIONS (1)
  - Death [Fatal]
